FAERS Safety Report 9855176 (Version 3)
Quarter: 2014Q2

REPORT INFORMATION
  Report Type: Spontaneous
  Country: CA (occurrence: CA)
  Receive Date: 20140130
  Receipt Date: 20140404
  Transmission Date: 20141212
  Serious: Yes (Death, Other)
  Sender: FDA-Public Use
  Company Number: CA-PFIZER INC-2014022028

PATIENT
  Age: 52 Year
  Sex: Male

DRUGS (9)
  1. VANCOMYCIN [Suspect]
     Indication: BACTERAEMIA
     Dosage: 15 MG/KG, UNK
     Route: 042
  2. VANCOMYCIN [Suspect]
     Indication: SEPSIS
  3. CEFTAZIDIME [Suspect]
     Indication: BACTERAEMIA
     Dosage: 1 G, UNK
     Route: 042
  4. CEFTAZIDIME [Suspect]
     Indication: SEPSIS
  5. IMATINIB [Concomitant]
     Indication: METASTASES TO LIVER
     Dosage: 100 MG, DAILY
     Route: 048
  6. IMATINIB [Concomitant]
     Indication: METASTASES TO KIDNEY
     Dosage: 400 MG, DAILY
     Route: 048
  7. IMATINIB [Concomitant]
     Indication: METASTASES TO BONE
  8. IMATINIB [Concomitant]
     Indication: DISEASE PROGRESSION
  9. SUNITINIB MALATE [Concomitant]
     Indication: METASTATIC GASTRIC CANCER
     Dosage: 37.5 MG, DAILY

REACTIONS (2)
  - Septic shock [Fatal]
  - Drug ineffective [Unknown]
